FAERS Safety Report 6159010-9 (Version None)
Quarter: 2009Q2

REPORT INFORMATION
  Report Type: 
  Country: None (occurrence: None)
  Receive Date: 20090417
  Receipt Date: 20090409
  Transmission Date: 20091009
  Serious: Yes (Other)
  Sender: FDA-Public Use
  Company Number: US-PFIZER INC-2009196441

PATIENT
  Sex: Male
  Weight: 86.182 kg

DRUGS (3)
  1. LIPITOR [Suspect]
     Indication: DYSLIPIDAEMIA
     Dosage: UNK
     Dates: start: 20020101, end: 20090101
  2. NIASPAN [Concomitant]
     Dosage: 500 MG, 2X/DAY
  3. CO-Q-10 [Concomitant]
     Dosage: 10 MG, 1X/DAY

REACTIONS (4)
  - MUSCLE CONTRACTIONS INVOLUNTARY [None]
  - MUSCLE SPASMS [None]
  - MYALGIA [None]
  - PAIN IN EXTREMITY [None]
